FAERS Safety Report 13386915 (Version 3)
Quarter: 2017Q2

REPORT INFORMATION
  Report Type: Report from Study
  Country: IL (occurrence: IL)
  Receive Date: 20170330
  Receipt Date: 20170425
  Transmission Date: 20170830
  Serious: Yes (Life-Threatening)
  Sender: FDA-Public Use
  Company Number: IL-NOVOPROD-517087

PATIENT
  Age: 20 Year
  Sex: Female
  Weight: 52 kg

DRUGS (4)
  1. IDEG PDS290 [Suspect]
     Active Substance: INSULIN DEGLUDEC
     Indication: TYPE 1 DIABETES MELLITUS
     Dosage: 26 U, QD
     Route: 058
     Dates: start: 20160817
  2. NOVORAPID [Suspect]
     Active Substance: INSULIN ASPART
     Indication: TYPE 1 DIABETES MELLITUS
     Dosage: 26 U, QD
     Route: 058
     Dates: start: 20160817
  3. LANTUS [Concomitant]
     Active Substance: INSULIN GLARGINE
     Indication: TYPE 1 DIABETES MELLITUS
     Dosage: 22 U, QD
     Route: 065
     Dates: start: 201406, end: 20160816
  4. HUMALOG [Concomitant]
     Active Substance: INSULIN LISPRO
     Indication: TYPE 1 DIABETES MELLITUS
     Dosage: 22 U, QD
     Route: 065
     Dates: start: 20121105, end: 20160817

REACTIONS (1)
  - Hypoglycaemia unawareness [Recovered/Resolved]

NARRATIVE: CASE EVENT DATE: 20161009
